FAERS Safety Report 8363499-4 (Version None)
Quarter: 2012Q2

REPORT INFORMATION
  Report Type: 
  Country: None (occurrence: None)
  Receive Date: 20120516
  Receipt Date: 20120502
  Transmission Date: 20120825
  Serious: Yes (Other)
  Sender: FDA-Public Use
  Company Number: US-MYLANLABS-2009AC000164

PATIENT
  Age: 44 Year
  Sex: Female
  Weight: 52.62 kg

DRUGS (42)
  1. POTASSIUM CHLORIDE [Concomitant]
  2. SPIRONOLACTONE [Concomitant]
  3. CYCRIN [Concomitant]
  4. KLOR-CON [Concomitant]
  5. TRETINOIN [Concomitant]
  6. TERAZOL /00685102/ [Concomitant]
  7. CLARINEX /01202601/ [Concomitant]
  8. DIFFERIN [Concomitant]
  9. ANTIBIOTICS [Concomitant]
     Dosage: OINTMENT
  10. VANIQA /00936001/ [Concomitant]
  11. CLARITIN-D [Concomitant]
  12. SOLAQUIN /00482801/ [Concomitant]
  13. ZANTAC [Concomitant]
  14. DIGOXIN [Suspect]
     Indication: PRODUCT USED FOR UNKNOWN INDICATION
     Route: 048
     Dates: start: 20020101
  15. CIPROFLOXACIN HCL [Concomitant]
  16. ERYTHROMYCIN [Concomitant]
  17. AUGMENTIN [Concomitant]
  18. LIDOCAINE 0.5% W/ EPINEPHRINE 1:200,000 [Concomitant]
  19. ULTRAM [Concomitant]
  20. DESONIDE [Concomitant]
  21. PLEXION /00677901/ [Concomitant]
  22. PROVERA [Concomitant]
  23. NEXIUM [Concomitant]
  24. HYDROCODONE BITARTRATE AND ACETAMINOPHEN [Concomitant]
  25. LUXIQ [Concomitant]
  26. LASIX [Concomitant]
  27. BIAXIN [Concomitant]
  28. TRIAMCINOLONE [Concomitant]
  29. METHYLPREDNISOLONE [Concomitant]
  30. GENORA [Concomitant]
  31. LORTAB [Concomitant]
  32. VERDESO [Concomitant]
  33. HYDROQUINONE [Concomitant]
  34. SULFAMETHOXAZOLE AND TRIMETHOPRIM [Concomitant]
  35. SULFACETAMIDE SODIUM [Concomitant]
  36. RETIN-A [Concomitant]
  37. BRONCHOLATE /00663301/ [Concomitant]
  38. IBUPROFEN [Concomitant]
  39. THYROID [Concomitant]
  40. NULYTELY [Concomitant]
  41. AZITHROMYCIN [Concomitant]
  42. NASONEX [Concomitant]

REACTIONS (18)
  - RASH [None]
  - HAIR GROWTH ABNORMAL [None]
  - CARDIAC MURMUR [None]
  - PALPITATIONS [None]
  - LACERATION [None]
  - INJURY [None]
  - SKIN LESION [None]
  - PSEUDOFOLLICULITIS BARBAE [None]
  - CONJUNCTIVITIS [None]
  - POST INFLAMMATORY PIGMENTATION CHANGE [None]
  - RASH PAPULAR [None]
  - ILL-DEFINED DISORDER [None]
  - PIGMENTATION DISORDER [None]
  - OEDEMA [None]
  - PRURIGO [None]
  - HYPERKERATOSIS [None]
  - ECONOMIC PROBLEM [None]
  - ACNE [None]
